FAERS Safety Report 8092742-4 (Version None)
Quarter: 2012Q1

REPORT INFORMATION
  Report Type: 
  Country: None (occurrence: None)
  Receive Date: 20120128
  Receipt Date: 20110804
  Transmission Date: 20120608
  Serious: No
  Sender: FDA-Public Use
  Company Number: US-ABBOTT-11P-163-0844098-00

PATIENT
  Age: 66 Year
  Sex: Female

DRUGS (8)
  1. HUMIRA [Suspect]
     Dosage: 0MG DAY 15
     Route: 058
  2. LEVOXYL [Concomitant]
     Indication: PRODUCT USED FOR UNKNOWN INDICATION
  3. TRIAMTERENE AND HYDROCHLOROTHIAZIDE [Concomitant]
     Indication: HYPERTENSION
     Dosage: 75/50 ONE TABLET DAILY
  4. HUMIRA [Suspect]
     Indication: CROHN'S DISEASE
     Dosage: LOADING DOSE
     Route: 058
     Dates: start: 20110609
  5. ASACOL [Concomitant]
     Indication: CROHN'S DISEASE
  6. HUMIRA [Suspect]
     Route: 058
  7. LEXAPRO [Concomitant]
     Indication: DEPRESSION
  8. XANAX [Concomitant]
     Indication: ANXIETY

REACTIONS (2)
  - INJECTION SITE HAEMATOMA [None]
  - CROHN'S DISEASE [None]
